FAERS Safety Report 5910602-9 (Version None)
Quarter: 2008Q4

REPORT INFORMATION
  Report Type: 
  Country: None (occurrence: None)
  Receive Date: 20081007
  Receipt Date: 20081007
  Transmission Date: 20090506
  Serious: Yes (Other)
  Sender: FDA-Public Use
  Company Number: A0750726A

PATIENT
  Age: 45 Year
  Sex: Female

DRUGS (2)
  1. ALLI [Suspect]
     Indication: WEIGHT LOSS DIET
     Route: 048
     Dates: start: 20081005
  2. EFFEXOR [Suspect]
     Indication: DEPRESSION
     Route: 065
     Dates: start: 20070101

REACTIONS (3)
  - CONSTIPATION [None]
  - FAECES HARD [None]
  - RECTAL HAEMORRHAGE [None]
